FAERS Safety Report 4381915-X (Version None)
Quarter: 2004Q2

REPORT INFORMATION
  Report Type: 
  Country: None (occurrence: None)
  Receive Date: 20040615
  Receipt Date: 20040603
  Transmission Date: 20050107
  Serious: Yes (Hospitalization)
  Sender: FDA-Public Use
  Company Number: 206963

PATIENT
  Age: 35 Year
  Sex: Male

DRUGS (1)
  1. EFALIZUMAB (EFALIZUMAB) PWDR + SOLVENT , INJECTION SOLN, 125 MG [Suspect]

REACTIONS (2)
  - PANCREATITIS [None]
  - PSORIASIS [None]
